FAERS Safety Report 23686524 (Version 1)
Quarter: 2024Q1

REPORT INFORMATION
  Report Type: Spontaneous
  Country: MX (occurrence: None)
  Receive Date: 20240329
  Receipt Date: 20240329
  Transmission Date: 20240410
  Serious: Yes (Other)
  Sender: FDA-Public Use
  Company Number: 2024A072782

PATIENT
  Age: 36 Year
  Sex: Female

DRUGS (3)
  1. OSIMERTINIB [Suspect]
     Active Substance: OSIMERTINIB
     Indication: Non-small cell lung cancer
     Route: 048
  2. PEMETREXED [Concomitant]
     Active Substance: PEMETREXED
     Dosage: 500 MG/M2
  3. CISPLATIN [Concomitant]
     Active Substance: CISPLATIN
     Dosage: 75 MG/M2

REACTIONS (2)
  - Malignant neoplasm progression [Unknown]
  - Off label use [Unknown]
